FAERS Safety Report 5538274-6 (Version None)
Quarter: 2007Q4

REPORT INFORMATION
  Report Type: 
  Country: None (occurrence: None)
  Receive Date: 20071204
  Receipt Date: 20071122
  Transmission Date: 20080405
  Serious: No
  Sender: FDA-Public Use
  Company Number: 2007-165089-NL

PATIENT
  Age: 70 Year
  Sex: Female

DRUGS (5)
  1. MIRTAZAPINE [Suspect]
     Indication: DEPRESSION
     Dosage: 30 MG
     Dates: start: 20050201
  2. AMITRIPTYLINE HYDROCHLORIDE [Suspect]
     Indication: DEPRESSION
     Dosage: 100 MG, ORAL
     Route: 048
     Dates: start: 20050201
  3. VENLAFAXINE HCL [Suspect]
     Indication: DEPRESSION
     Dosage: 75 MG
     Dates: start: 20060601
  4. OXAZEPAM [Suspect]
     Dosage: 15 MG TID, ORAL
     Route: 048
     Dates: start: 20060201
  5. NITRAZEPAM [Suspect]
     Dosage: 5 MG
     Dates: start: 20050201

REACTIONS (1)
  - TEETH BRITTLE [None]
